FAERS Safety Report 20350236 (Version 1)
Quarter: 2022Q1

REPORT INFORMATION
  Report Type: Spontaneous
  Country: FR (occurrence: None)
  Receive Date: 20220119
  Receipt Date: 20220119
  Transmission Date: 20220423
  Serious: Yes (Hospitalization)
  Sender: FDA-Public Use
  Company Number: 2022A014255

PATIENT
  Age: 45 Year
  Sex: Female
  Weight: 66 kg

DRUGS (3)
  1. ZOMIG [Suspect]
     Active Substance: ZOLMITRIPTAN
     Indication: Migraine
     Dosage: 1 DOSAGE FORM, 1/DAY
     Route: 048
     Dates: start: 2021, end: 20210819
  2. COMIRNATY [Suspect]
     Active Substance: TOZINAMERAN
     Indication: COVID-19 immunisation
     Dosage: 1 DOSAGE FORM, 1/DAY
     Route: 030
     Dates: start: 20210728, end: 20210728
  3. AETOXISCLEROL [Suspect]
     Active Substance: POLIDOCANOL
     Indication: Varicose vein
     Dosage: UNK
     Route: 065

REACTIONS (1)
  - Colitis ischaemic [Recovering/Resolving]

NARRATIVE: CASE EVENT DATE: 20210822
